FAERS Safety Report 22059238 (Version 1)
Quarter: 2023Q1

REPORT INFORMATION
  Report Type: Spontaneous
  Country: AT (occurrence: AT)
  Receive Date: 20230303
  Receipt Date: 20230303
  Transmission Date: 20230417
  Serious: Yes (Hospitalization)
  Sender: FDA-Public Use
  Company Number: AT-MYLANLABS-2023M1022821

PATIENT
  Age: 14 Year
  Sex: Male

DRUGS (14)
  1. PHENYTOIN [Suspect]
     Active Substance: PHENYTOIN
     Indication: New onset refractory status epilepticus
     Dosage: UNK
     Route: 042
  2. PHENYTOIN [Suspect]
     Active Substance: PHENYTOIN
     Indication: Status epilepticus
     Dosage: 300 MILLIGRAM, QD
     Route: 065
  3. LEVETIRACETAM [Suspect]
     Active Substance: LEVETIRACETAM
     Indication: Status epilepticus
     Dosage: 4500 MILLIGRAM, QD
     Route: 065
  4. LEVETIRACETAM [Suspect]
     Active Substance: LEVETIRACETAM
     Dosage: 3250 MILLIGRAM, QD
     Route: 065
  5. LACOSAMIDE [Suspect]
     Active Substance: LACOSAMIDE
     Indication: Status epilepticus
     Dosage: 1200 MILLIGRAM, QD
     Route: 065
  6. LACOSAMIDE [Suspect]
     Active Substance: LACOSAMIDE
     Dosage: 600 MILLIGRAM, QD
     Route: 065
  7. PROPOFOL [Suspect]
     Active Substance: PROPOFOL
     Indication: Status epilepticus
     Dosage: UNK; INFUSION
     Route: 042
  8. COENZYME Q10 [Suspect]
     Active Substance: DIETARY SUPPLEMENT\UBIDECARENONE
     Indication: Status epilepticus
     Dosage: UNK
     Route: 065
  9. PERAMPANEL [Suspect]
     Active Substance: PERAMPANEL
     Indication: Status epilepticus
     Dosage: 12 MILLIGRAM, QD
     Route: 065
  10. LEVETIRACETAM [Concomitant]
     Active Substance: LEVETIRACETAM
     Indication: New onset refractory status epilepticus
     Dosage: 2 GRAM
     Route: 042
  11. LEVETIRACETAM [Concomitant]
     Active Substance: LEVETIRACETAM
     Dosage: UNK
     Route: 042
  12. LACOSAMIDE [Concomitant]
     Active Substance: LACOSAMIDE
     Indication: New onset refractory status epilepticus
     Dosage: UNK
     Route: 042
  13. LORAZEPAM [Concomitant]
     Active Substance: LORAZEPAM
     Indication: New onset refractory status epilepticus
     Dosage: 4 MILLIGRAM
     Route: 065
  14. DIAZEPAM [Concomitant]
     Active Substance: DIAZEPAM
     Indication: New onset refractory status epilepticus
     Dosage: 16 MILLIGRAM
     Route: 065

REACTIONS (1)
  - Drug ineffective [Unknown]
